FAERS Safety Report 23088261 (Version 1)
Quarter: 2023Q4

REPORT INFORMATION
  Report Type: Spontaneous
  Country: PT (occurrence: PT)
  Receive Date: 20231020
  Receipt Date: 20231020
  Transmission Date: 20240110
  Serious: Yes (Disabling, Other)
  Sender: FDA-Public Use
  Company Number: PT-INFARMED-T202310-127

PATIENT
  Age: 66 Year
  Sex: Female
  Weight: 50 kg

DRUGS (4)
  1. AMOXICILLIN TRIHYDRATE [Suspect]
     Active Substance: AMOXICILLIN
     Indication: Helicobacter infection
     Dosage: 1000 MILLIGRAM, TWO TIMES A DAY, ( 1 12/12 HOUR TABLET)
     Route: 048
     Dates: start: 20230927
  2. BUSPIRONE HYDROCHLORIDE [Suspect]
     Active Substance: BUSPIRONE HYDROCHLORIDE
     Indication: Depression
     Dosage: 5 MILLIGRAM, ONCE A DAY, ( 1 TABLET PER DAY OF MORNING)
     Route: 048
     Dates: start: 20230914
  3. SERTRALINE HYDROCHLORIDE [Suspect]
     Active Substance: SERTRALINE HYDROCHLORIDE
     Indication: Insomnia
     Dosage: 50 MILLIGRAM, ONCE A DAY, ( 1 TABLET IN THE MORNING)
     Route: 048
     Dates: start: 20230914
  4. CLARITHROMYCIN [Suspect]
     Active Substance: CLARITHROMYCIN
     Indication: Helicobacter infection
     Dosage: 500 MILLIGRAM, (1 12/12 HOUR TABLET)
     Route: 048
     Dates: start: 20230927

REACTIONS (5)
  - Arrhythmia [Not Recovered/Not Resolved]
  - Hyperhidrosis [Not Recovered/Not Resolved]
  - Hypertension [Not Recovered/Not Resolved]
  - Muscle rigidity [Not Recovered/Not Resolved]
  - Tremor [Not Recovered/Not Resolved]

NARRATIVE: CASE EVENT DATE: 20231002
